FAERS Safety Report 6253069-6 (Version None)
Quarter: 2009Q3

REPORT INFORMATION
  Report Type: 
  Country: None (occurrence: None)
  Receive Date: 20090701
  Receipt Date: 20090623
  Transmission Date: 20100115
  Serious: Yes (Other)
  Sender: FDA-Public Use
  Company Number: PHHY2009JP25326

PATIENT
  Age: 67 Year
  Sex: Male

DRUGS (3)
  1. ZOMETA [Suspect]
     Indication: BONE LESION
     Dosage: 4 MG, UNK
     Route: 042
     Dates: start: 20080101, end: 20090101
  2. TAXOTERE [Concomitant]
  3. LH-RH INJ. [Concomitant]

REACTIONS (2)
  - OSTEONECROSIS [None]
  - TOOTHACHE [None]
